FAERS Safety Report 22660965 (Version 1)
Quarter: 2023Q2

REPORT INFORMATION
  Report Type: Spontaneous
  Country: RS (occurrence: RS)
  Receive Date: 20230630
  Receipt Date: 20230630
  Transmission Date: 20230721
  Serious: Yes (Other)
  Sender: FDA-Public Use
  Company Number: RS-SUN PHARMACEUTICAL INDUSTRIES LTD-2023R1-397096

PATIENT
  Age: 66 Year
  Sex: Female

DRUGS (2)
  1. METHYLPREDNISOLONE [Suspect]
     Active Substance: METHYLPREDNISOLONE
     Indication: Noninfective encephalitis
     Dosage: 1 GRAM, DAILY
     Route: 065
  2. PREDNISONE [Suspect]
     Active Substance: PREDNISONE
     Indication: Noninfective encephalitis
     Dosage: UNK (1 MG/KG)
     Route: 048

REACTIONS (2)
  - Sepsis [Recovered/Resolved]
  - Disease progression [Unknown]
